FAERS Safety Report 14410931 (Version 1)
Quarter: 2018Q1

REPORT INFORMATION
  Report Type: Report from Study
  Country: BR (occurrence: BR)
  Receive Date: 20180119
  Receipt Date: 20180119
  Transmission Date: 20180509
  Serious: Yes (Other)
  Sender: FDA-Public Use
  Company Number: PHHY2017BR172040

PATIENT
  Sex: Male
  Weight: 75 kg

DRUGS (1)
  1. VOTRIENT [Suspect]
     Active Substance: PAZOPANIB HYDROCHLORIDE
     Indication: METASTATIC RENAL CELL CARCINOMA
     Dosage: 2 DF, QD
     Route: 048
     Dates: start: 20170428

REACTIONS (5)
  - Liver function test abnormal [Unknown]
  - Drug ineffective [Unknown]
  - Weight increased [Unknown]
  - Pulmonary mass [Unknown]
  - Hepatic lesion [Unknown]
